FAERS Safety Report 7391319-3 (Version None)
Quarter: 2011Q2

REPORT INFORMATION
  Report Type: 
  Country: None (occurrence: None)
  Receive Date: 20110404
  Receipt Date: 20110325
  Transmission Date: 20111010
  Serious: Yes (Hospitalization)
  Sender: FDA-Public Use
  Company Number: JP-ASTELLAS-2011US001211

PATIENT
  Sex: Female

DRUGS (11)
  1. EXCEGRAN [Concomitant]
     Indication: PRODUCT USED FOR UNKNOWN INDICATION
     Dosage: UNK
     Route: 065
  2. ALEVIATIN [Interacting]
     Dosage: UNK
     Route: 065
     Dates: start: 20110126
  3. TAKEPRON [Concomitant]
     Indication: PRODUCT USED FOR UNKNOWN INDICATION
     Dosage: UNK
     Route: 065
  4. PENTCILLIN [Concomitant]
     Indication: PRODUCT USED FOR UNKNOWN INDICATION
     Dosage: UNK
     Route: 065
  5. ALEVIATIN [Interacting]
     Indication: PRODUCT USED FOR UNKNOWN INDICATION
     Dosage: UNK
     Route: 065
  6. ALEVIATIN [Interacting]
     Dosage: UNK
     Route: 065
     Dates: start: 20110131
  7. PHENOBAL [Concomitant]
     Indication: PRODUCT USED FOR UNKNOWN INDICATION
     Dosage: UNK
     Route: 065
  8. ITRIZOLE [Concomitant]
     Indication: PRODUCT USED FOR UNKNOWN INDICATION
     Dosage: UNK
     Route: 065
  9. ALEVIATIN [Interacting]
     Dosage: UNK
     Route: 065
     Dates: start: 20110124
  10. ALEVIATIN [Interacting]
     Dosage: UNK
     Route: 065
     Dates: start: 20110128
  11. AMBISOME [Suspect]
     Indication: FUNGAL INFECTION
     Dosage: 50 MG, UID/QD
     Route: 041
     Dates: start: 20110117, end: 20110131

REACTIONS (3)
  - ANTICONVULSANT DRUG LEVEL DECREASED [None]
  - DRUG INTERACTION [None]
  - STATUS EPILEPTICUS [None]
